FAERS Safety Report 6129698-7 (Version None)
Quarter: 2009Q1

REPORT INFORMATION
  Report Type: 
  Country: None (occurrence: None)
  Receive Date: 20090323
  Receipt Date: 20090323
  Transmission Date: 20090719
  Serious: No
  Sender: FDA-Public Use
  Company Number: None

PATIENT
  Sex: Female
  Weight: 63.5036 kg

DRUGS (2)
  1. FEXOFENADINE [Suspect]
     Indication: HYPERSENSITIVITY
     Dosage: 60 MG 2 TIMES PER DAY PO
     Route: 048
     Dates: start: 20080810, end: 20090110
  2. FEXOFENADINE [Suspect]
     Indication: HYPERSENSITIVITY
     Dosage: 180 MG 1 TIME PER DAY PO
     Route: 048
     Dates: start: 20090110, end: 20090117

REACTIONS (3)
  - DRUG INEFFECTIVE [None]
  - HYPERSENSITIVITY [None]
  - PRODUCT QUALITY ISSUE [None]
